FAERS Safety Report 12839343 (Version 1)
Quarter: 2016Q4

REPORT INFORMATION
  Report Type: Spontaneous
  Country: US (occurrence: US)
  Receive Date: 20161011
  Receipt Date: 20161011
  Transmission Date: 20170207
  Serious: Yes (Life-Threatening, Hospitalization, Disabling)
  Sender: FDA-Public Use
  Company Number: None

PATIENT
  Age: 31 Year
  Sex: Female
  Weight: 56.7 kg

DRUGS (16)
  1. DAILY, WOMEN^S HEALTH [Concomitant]
  2. PEPTO BISMAL [Concomitant]
  3. RESTASIS [Concomitant]
     Active Substance: CYCLOSPORINE
  4. CLINDAMYCIN PHOSPHATE SOLUTION PADS [Concomitant]
  5. RETIN-A TOPICAL SOLUTION [Concomitant]
  6. VITAMIN C [Concomitant]
     Active Substance: ASCORBIC ACID
  7. SUMATRIPTAN SUCC [Concomitant]
     Active Substance: SUMATRIPTAN SUCCINATE
  8. EPIDUO TOPICAL SOLUTION [Concomitant]
  9. VITAMIN D3 [Concomitant]
     Active Substance: CHOLECALCIFEROL
  10. INVEGA SUSTENNA [Suspect]
     Active Substance: PALIPERIDONE PALMITATE
     Indication: SCHIZOPHRENIA
     Dates: start: 20160613, end: 20160617
  11. MIRENA [Concomitant]
     Active Substance: LEVONORGESTREL
  12. VITAMIN E [Concomitant]
     Active Substance: .ALPHA.-TOCOPHEROL
  13. TYLENOL [Concomitant]
     Active Substance: ACETAMINOPHEN
  14. OASIS TEARS PLUS [Concomitant]
     Active Substance: GLYCERIN
  15. OMEPRAZOLE. [Concomitant]
     Active Substance: OMEPRAZOLE
  16. CYCLOBENZAPRINE [Concomitant]
     Active Substance: CYCLOBENZAPRINE

REACTIONS (47)
  - Dyspnoea [None]
  - Breast pain [None]
  - Dry eye [None]
  - Insomnia [None]
  - Constipation [None]
  - Fear [None]
  - Dizziness [None]
  - Confusional state [None]
  - Rash [None]
  - Dysarthria [None]
  - Mydriasis [None]
  - Headache [None]
  - Gait disturbance [None]
  - Urinary tract infection [None]
  - Ear congestion [None]
  - Eye movement disorder [None]
  - Acne [None]
  - Weight increased [None]
  - Hypoacusis [None]
  - Sleep disorder [None]
  - Appetite disorder [None]
  - Back pain [None]
  - Swelling face [None]
  - Throat tightness [None]
  - Breast enlargement [None]
  - Restlessness [None]
  - Pruritus [None]
  - Nausea [None]
  - Chills [None]
  - Hypoaesthesia [None]
  - White blood cell count increased [None]
  - Visual impairment [None]
  - Muscle spasms [None]
  - Thirst [None]
  - Fatigue [None]
  - Nervousness [None]
  - Vision blurred [None]
  - Malaise [None]
  - Eye pain [None]
  - Dry mouth [None]
  - Swollen tongue [None]
  - Dysphagia [None]
  - Anxiety [None]
  - Nightmare [None]
  - Pain in extremity [None]
  - Heart rate irregular [None]
  - Myalgia [None]

NARRATIVE: CASE EVENT DATE: 20160617
